FAERS Safety Report 9891355 (Version 1)
Quarter: 2014Q1

REPORT INFORMATION
  Report Type: Spontaneous
  Country: US (occurrence: None)
  Receive Date: 20140210
  Receipt Date: 20140210
  Transmission Date: 20141002
  Serious: Yes (Death, Hospitalization)
  Sender: FDA-Public Use
  Company Number: UTC-043452

PATIENT
  Age: 56 Year
  Sex: Male
  Weight: 61.36 kg

DRUGS (2)
  1. TYVASO (6 MICROGRAM, AEROSOL FOR INHALATION) (TREPROSTINIL SODIUM) [Suspect]
     Dosage: 18 TO 54 MCGS
     Route: 055
     Dates: start: 20111205
  2. TRACLEER (BOSENTAN) [Concomitant]

REACTIONS (6)
  - Mental disorder [None]
  - Dysarthria [None]
  - Confusional state [None]
  - Hypertension [None]
  - Renal impairment [None]
  - Mental status changes [None]
